FAERS Safety Report 10384497 (Version 1)
Quarter: 2014Q1

REPORT INFORMATION
  Report Type: Spontaneous
  Country: US (occurrence: None)
  Receive Date: 20140306
  Receipt Date: 20140306
  Transmission Date: 20141002
  Serious: Yes (Hospitalization)
  Sender: FDA-Public Use
  Company Number: 163-21880-13102241

PATIENT
  Age: 69 Year
  Sex: Female

DRUGS (11)
  1. REVLIMID (LENALIDOMIDE) (25 MILLIGRAM, CAPSULES) [Suspect]
     Indication: PLASMA CELL MYELOMA
     Dosage: OCT-2012 - INTERRUPTED?25 MG, 21 IN 28 D, PO
     Route: 048
     Dates: start: 201210
  2. COUMADIN (WARFARIN SODIUM) [Concomitant]
  3. AMLODIPINE/ATORVASTATIN (AMLODIPINE W/ATORVASTATIN) [Concomitant]
  4. CHLOROPHYLLIN COPPER COMPLEX (CHLOROPHYLLIN SODIUM COPPER COMPLEX) [Concomitant]
  5. DEXAMETHASONE [Concomitant]
  6. LEVOTHYROXINE SODIUM [Concomitant]
  7. RBCS (RED BLOOD CELLS, CONCENTRATED) [Concomitant]
  8. DYAZIDE [Concomitant]
  9. ARMOUR THYROID [Concomitant]
  10. IRON [Concomitant]
  11. CALCIUM [Concomitant]

REACTIONS (1)
  - Deep vein thrombosis [None]
